FAERS Safety Report 3907487 (Version 2)
Quarter: 2013Q3

REPORT INFORMATION
  Report Type: Spontaneous
  Country: US (occurrence: US)
  Receive Date: 20030228
  Receipt Date: 20130909
  Transmission Date: 20140515
  Serious: No
  Sender: FDA-Public Use
  Company Number: US-BRISTOL-MYERS SQUIBB COMPANY-12130118

PATIENT
  Age: 24 Year
  Sex: Male
  Weight: 83.9 kg

DRUGS (4)
  1. ABILIFY [Suspect]
     Indication: SCHIZOPHRENIA
     Route: 048
  2. ABILIFY [Suspect]
     Indication: BIPOLAR DISORDER
     Route: 048
  3. CLOZARIL [Concomitant]
  4. DEPAKOTE [Concomitant]

REACTIONS (7)
  - Decreased appetite [Unknown]
  - Increased appetite [Unknown]
  - Sleep disorder [Unknown]
  - Depression [Unknown]
  - Dizziness [Unknown]
  - Nephrolithiasis [Unknown]
  - Treatment noncompliance [Unknown]
